FAERS Safety Report 25087976 (Version 1)
Quarter: 2025Q1

REPORT INFORMATION
  Report Type: Other
  Country: GB (occurrence: GB)
  Receive Date: 20250318
  Receipt Date: 20250318
  Transmission Date: 20250409
  Serious: Yes (Other)
  Sender: STRIDES
  Company Number: None

PATIENT
  Age: 66 Year

DRUGS (1)
  1. GABAPENTIN [Suspect]
     Active Substance: GABAPENTIN
     Indication: Product used for unknown indication
     Route: 065

REACTIONS (5)
  - Oesophageal obstruction [Unknown]
  - Oesophageal disorder [Unknown]
  - Dysphagia [Unknown]
  - Regurgitation [Unknown]
  - Pain [Unknown]
